FAERS Safety Report 25658395 (Version 1)
Quarter: 2025Q3

REPORT INFORMATION
  Report Type: Spontaneous
  Country: EU (occurrence: EU)
  Receive Date: 20250808
  Receipt Date: 20250808
  Transmission Date: 20251021
  Serious: Yes (Other)
  Sender: AUROBINDO
  Company Number: EU-AstraZeneca-2022A265042

PATIENT
  Age: 64 Year
  Sex: Male

DRUGS (11)
  1. ASPIRIN [Interacting]
     Active Substance: ASPIRIN
     Indication: Acute myocardial infarction
     Route: 065
  2. ASPIRIN [Interacting]
     Active Substance: ASPIRIN
     Indication: Angiocardiogram
  3. ATORVASTATIN [Interacting]
     Active Substance: ATORVASTATIN
     Indication: Acute myocardial infarction
     Dosage: 80 MILLIGRAM, ONCE A DAY
     Route: 065
  4. ATORVASTATIN [Interacting]
     Active Substance: ATORVASTATIN
     Indication: Angiocardiogram
     Dosage: 20 MILLIGRAM, ONCE A DAY
     Route: 065
  5. TICAGRELOR [Interacting]
     Active Substance: TICAGRELOR
     Indication: Antiplatelet therapy
     Dosage: 180 MILLIGRAM, ONCE A DAY
     Route: 048
  6. TICAGRELOR [Interacting]
     Active Substance: TICAGRELOR
     Indication: Acute myocardial infarction
  7. TICAGRELOR [Interacting]
     Active Substance: TICAGRELOR
     Indication: Angiocardiogram
  8. RILPIVIRINE [Concomitant]
     Active Substance: RILPIVIRINE
     Indication: Product used for unknown indication
     Route: 065
  9. DARUNAVIR [Concomitant]
     Active Substance: DARUNAVIR
     Indication: Product used for unknown indication
     Route: 065
  10. COBICISTAT [Concomitant]
     Active Substance: COBICISTAT
     Indication: Product used for unknown indication
     Route: 065
  11. PRASUGREL [Concomitant]
     Active Substance: PRASUGREL
     Indication: Product used for unknown indication
     Route: 065

REACTIONS (1)
  - Drug interaction [Unknown]
